FAERS Safety Report 5046368-7 (Version None)
Quarter: 2006Q3

REPORT INFORMATION
  Report Type: 
  Country: None (occurrence: None)
  Receive Date: 20060710
  Receipt Date: 20060427
  Transmission Date: 20061208
  Serious: Yes (Death)
  Sender: FDA-Public Use
  Company Number: NL-SANOFI-SYNTHELABO-A01200605223

PATIENT
  Age: 38 Year
  Sex: Female

DRUGS (3)
  1. ASPIRIN [Concomitant]
     Indication: ACUTE MYOCARDIAL INFARCTION
     Route: 048
  2. PLAVIX [Suspect]
     Indication: ACUTE MYOCARDIAL INFARCTION
     Route: 048
  3. HEPARIN [Concomitant]
     Indication: DRUG USE FOR UNKNOWN INDICATION
     Dosage: 70 IU/KG
     Route: 042

REACTIONS (4)
  - CARDIOGENIC SHOCK [None]
  - DRUG RESISTANCE [None]
  - STENT OCCLUSION [None]
  - THROMBOSIS IN DEVICE [None]
